FAERS Safety Report 17243545 (Version 2)
Quarter: 2020Q2

REPORT INFORMATION
  Report Type: Report from Study
  Country: US (occurrence: US)
  Receive Date: 20200107
  Receipt Date: 20200415
  Transmission Date: 20200713
  Serious: No
  Sender: FDA-Public Use
  Company Number: US-ASTRAZENECA-2019SF91525

PATIENT
  Sex: Male

DRUGS (3)
  1. LASIX [Concomitant]
     Active Substance: FUROSEMIDE
  2. SYNAGIS [Suspect]
     Active Substance: PALIVIZUMAB
     Indication: INFANT
     Dosage: 100MG/ML MONTHLY
     Route: 030
     Dates: start: 20191104
  3. VITAMIN D [Concomitant]
     Active Substance: VITAMIN D NOS

REACTIONS (1)
  - Nasopharyngitis [Not Recovered/Not Resolved]
